FAERS Safety Report 18583494 (Version 2)
Quarter: 2020Q4

REPORT INFORMATION
  Report Type: Spontaneous
  Country: RU (occurrence: RU)
  Receive Date: 20201207
  Receipt Date: 20201215
  Transmission Date: 20210114
  Serious: Yes (Death)
  Sender: FDA-Public Use
  Company Number: RU-ASTRAZENECA-2020SF60956

PATIENT
  Age: 82 Year
  Sex: Male
  Weight: 70 kg

DRUGS (1)
  1. PULMICORT TURBUHALER [Suspect]
     Active Substance: BUDESONIDE
     Indication: ASTHMA
     Dosage: UNKNOWN DOSAGE, DAILY
     Route: 055
     Dates: start: 2016, end: 201901

REACTIONS (4)
  - Thrombosis [Fatal]
  - Blood creatinine increased [Unknown]
  - Dyspnoea [Unknown]
  - Myocardial infarction [Fatal]
